FAERS Safety Report 16956692 (Version 2)
Quarter: 2019Q4

REPORT INFORMATION
  Report Type: Spontaneous
  Country: JP (occurrence: JP)
  Receive Date: 20191024
  Receipt Date: 20191105
  Transmission Date: 20200122
  Serious: Yes (Hospitalization, Other)
  Sender: FDA-Public Use
  Company Number: JP-PFIZER INC-2019456954

PATIENT
  Age: 61 Year
  Sex: Female

DRUGS (6)
  1. CISPLATIN. [Suspect]
     Active Substance: CISPLATIN
     Indication: CERVIX CARCINOMA
  2. PACLITAXEL. [Suspect]
     Active Substance: PACLITAXEL
     Indication: CERVIX CARCINOMA
     Dosage: 135 MG/M2, UNK (SYSTEMIC CHEMOTHERAPY)
  3. CISPLATIN. [Suspect]
     Active Substance: CISPLATIN
     Indication: METASTASES TO LYMPH NODES
     Dosage: 50 MG/M2, UNK (ON THE NEXT DAY OF EACH TREATMENT)
  4. BEVACIZUMAB. [Suspect]
     Active Substance: BEVACIZUMAB
     Indication: CERVIX CARCINOMA
     Dosage: 15 MG/KG, UNK (ADMINISTERED FOR 63 AND 36 DAYS BEFORE THE ONSET, SYSTEMIC )
  5. BEVACIZUMAB. [Suspect]
     Active Substance: BEVACIZUMAB
     Indication: METASTASES TO LYMPH NODES
  6. PACLITAXEL. [Suspect]
     Active Substance: PACLITAXEL
     Indication: METASTASES TO LYMPH NODES

REACTIONS (3)
  - Hepatic enzyme increased [Recovering/Resolving]
  - Bacteraemia [Recovered/Resolved]
  - Cholangitis sclerosing [Recovered/Resolved]
